FAERS Safety Report 6607309-1 (Version None)
Quarter: 2010Q1

REPORT INFORMATION
  Report Type: 
  Country: None (occurrence: None)
  Receive Date: 20100228
  Receipt Date: 20100225
  Transmission Date: 20100710
  Serious: Yes (Other)
  Sender: FDA-Public Use
  Company Number: DE-BRISTOL-MYERS SQUIBB COMPANY-14842645

PATIENT
  Age: 64 Decade
  Sex: Male
  Weight: 103 kg

DRUGS (3)
  1. ONGLYZA [Suspect]
     Indication: TYPE 2 DIABETES MELLITUS
     Dosage: TAKEN IN THE MORNING
     Route: 048
  2. KARVEA [Suspect]
     Dosage: FOR 7-8 YRS
     Route: 048
  3. GLIMEPIRIDE [Suspect]

REACTIONS (4)
  - BLOOD GLUCOSE INCREASED [None]
  - CARDIAC FAILURE [None]
  - HYPOGLYCAEMIA [None]
  - OEDEMA PERIPHERAL [None]
